FAERS Safety Report 12360348 (Version 1)
Quarter: 2016Q2

REPORT INFORMATION
  Report Type: Spontaneous
  Country: US (occurrence: US)
  Receive Date: 20160512
  Receipt Date: 20160512
  Transmission Date: 20160815
  Serious: No
  Sender: FDA-Public Use
  Company Number: US-TARO-2016TAR00219

PATIENT
  Age: 27 Year
  Sex: Female
  Weight: 72.56 kg

DRUGS (2)
  1. CLOTRIMAZOLE VAGINAL CREAM USP 2% 3 DAY [Suspect]
     Active Substance: CLOTRIMAZOLE
     Indication: FUNGAL INFECTION
     Dosage: UNK, 1X/DAY
     Route: 067
     Dates: start: 20160304
  2. IRON PILLS [Concomitant]
     Active Substance: IRON
     Dosage: 27 MG, UNK

REACTIONS (1)
  - Urticaria [Not Recovered/Not Resolved]

NARRATIVE: CASE EVENT DATE: 20160306
